FAERS Safety Report 13938413 (Version 1)
Quarter: 2017Q3

REPORT INFORMATION
  Report Type: Spontaneous
  Country: US (occurrence: US)
  Receive Date: 20170905
  Receipt Date: 20170905
  Transmission Date: 20171127
  Serious: Yes (Other)
  Sender: FDA-Public Use
  Company Number: US-BAYER-2017-168706

PATIENT
  Age: 31 Year
  Sex: Female

DRUGS (1)
  1. MIRENA [Suspect]
     Active Substance: LEVONORGESTREL
     Indication: CONTRACEPTION
     Dosage: 20 MCG/24HR, CONT
     Route: 015
     Dates: end: 20170901

REACTIONS (5)
  - Pregnancy with contraceptive device [Unknown]
  - Polycystic ovaries [Unknown]
  - Drug ineffective [Unknown]
  - Abdominal pain lower [Unknown]
  - Abdominal pain lower [None]

NARRATIVE: CASE EVENT DATE: 2017
